FAERS Safety Report 10157863 (Version 1)
Quarter: 2014Q2

REPORT INFORMATION
  Report Type: Spontaneous
  Country: US (occurrence: US)
  Receive Date: 20140507
  Receipt Date: 20140507
  Transmission Date: 20141212
  Serious: No
  Sender: FDA-Public Use
  Company Number: US-009507513-2012SP011985

PATIENT
  Age: 3 Year
  Sex: Female
  Weight: 20.41 kg

DRUGS (1)
  1. CLARITIN ORAL SOLUTION [Suspect]
     Indication: PRODUCT USED FOR UNKNOWN INDICATION
     Dosage: 40 MG, ONCE
     Route: 048
     Dates: start: 20120226

REACTIONS (3)
  - Accidental exposure to product by child [Recovering/Resolving]
  - Overdose [Recovering/Resolving]
  - Off label use [Unknown]
